FAERS Safety Report 9843335 (Version 1)
Quarter: 2014Q1

REPORT INFORMATION
  Report Type: Spontaneous
  Country: BR (occurrence: BR)
  Receive Date: 20140125
  Receipt Date: 20140125
  Transmission Date: 20141002
  Serious: Yes (Other)
  Sender: FDA-Public Use
  Company Number: BR-JNJFOC-20140106991

PATIENT
  Age: 55 Year
  Sex: Female
  Weight: 53 kg

DRUGS (5)
  1. TYLENOL 750 [Suspect]
     Indication: SINUSITIS
     Route: 048
     Dates: start: 20131228, end: 20131230
  2. TYLENOL 750 [Suspect]
     Indication: SINUSITIS
     Route: 048
     Dates: start: 20140104, end: 20140104
  3. TYLENOL 750 [Suspect]
     Indication: HEADACHE
     Route: 048
     Dates: start: 20131228, end: 20131230
  4. TYLENOL 750 [Suspect]
     Indication: HEADACHE
     Route: 048
     Dates: start: 20140104, end: 20140104
  5. LANSOPRAZOLE [Concomitant]
     Indication: GASTRITIS
     Route: 065
     Dates: start: 20131226, end: 20140106

REACTIONS (4)
  - Liver injury [Unknown]
  - Erythema [Recovered/Resolved]
  - Pyrexia [Recovered/Resolved]
  - Hyperhidrosis [Recovered/Resolved]
